FAERS Safety Report 4883637-5 (Version None)
Quarter: 2006Q1

REPORT INFORMATION
  Report Type: 
  Country: None (occurrence: None)
  Receive Date: 20060118
  Receipt Date: 20060111
  Transmission Date: 20060701
  Serious: Yes (Hospitalization)
  Sender: FDA-Public Use
  Company Number: PHRM2006FR00508

PATIENT
  Age: 42 Year
  Sex: Male

DRUGS (4)
  1. TRILEPTAL [Suspect]
     Dosage: 3 TAB/DAY
     Route: 048
     Dates: end: 20051012
  2. IMOVANE [Concomitant]
     Dosage: 7.5 MG/DAY
     Route: 048
  3. TERCIAN [Concomitant]
     Dosage: 75 MG/DAY
     Route: 048
  4. SERESTA [Concomitant]
     Dosage: 40 MG/DAY
     Route: 048

REACTIONS (8)
  - ALANINE AMINOTRANSFERASE INCREASED [None]
  - ALCOHOL POISONING [None]
  - CONVULSION [None]
  - GAMMA-GLUTAMYLTRANSFERASE INCREASED [None]
  - HYPERCALCAEMIA [None]
  - HYPOCHLORAEMIA [None]
  - HYPONATRAEMIA [None]
  - URINE SODIUM DECREASED [None]
